FAERS Safety Report 5927251-9 (Version None)
Quarter: 2008Q4

REPORT INFORMATION
  Report Type: 
  Country: None (occurrence: None)
  Receive Date: 20081017
  Receipt Date: 20081003
  Transmission Date: 20090506
  Serious: Yes (Death, Hospitalization)
  Sender: FDA-Public Use
  Company Number: 2008PL000154

PATIENT
  Age: 66 Year
  Sex: Female

DRUGS (3)
  1. ALLOPURINOL [Suspect]
     Indication: GOUT
     Dosage: 300 MG; QD
  2. PROPRANOLOL [Concomitant]
  3. LISINOPRIL [Concomitant]

REACTIONS (11)
  - ASTHENIA [None]
  - DIZZINESS [None]
  - GRANULOMATOUS LIVER DISEASE [None]
  - LIVER DISORDER [None]
  - MULTI-ORGAN FAILURE [None]
  - OBESITY [None]
  - OEDEMA PERIPHERAL [None]
  - PLATELET COUNT DECREASED [None]
  - PNEUMOCYSTIS JIROVECI INFECTION [None]
  - PYREXIA [None]
  - SPLENOMEGALY [None]
